FAERS Safety Report 5781623-4 (Version None)
Quarter: 2008Q2

REPORT INFORMATION
  Report Type: 
  Country: None (occurrence: None)
  Receive Date: 20080623
  Receipt Date: 20080613
  Transmission Date: 20081010
  Serious: Yes (Hospitalization)
  Sender: FDA-Public Use
  Company Number: DE-JNJFOC-20080603281

PATIENT
  Age: 73 Year
  Sex: Female

DRUGS (8)
  1. RISPERDAL [Suspect]
     Indication: DRUG USE FOR UNKNOWN INDICATION
     Route: 048
  2. ZYPREXA [Suspect]
     Indication: DRUG USE FOR UNKNOWN INDICATION
     Route: 048
  3. MIRTAZAPINE [Concomitant]
     Route: 048
  4. MIRTAZAPINE [Concomitant]
     Route: 048
  5. FALITHROM [Concomitant]
     Route: 048
  6. SIMVAHEXAL [Concomitant]
     Route: 048
  7. RAMIPRIL [Concomitant]
     Route: 048
  8. BELOC ZOK [Concomitant]
     Route: 048

REACTIONS (1)
  - PLEUROTHOTONUS [None]
